FAERS Safety Report 16156955 (Version 1)
Quarter: 2019Q2

REPORT INFORMATION
  Report Type: Report from Study
  Country: US (occurrence: US)
  Receive Date: 20190404
  Receipt Date: 20190404
  Transmission Date: 20190711
  Serious: Yes (Other)
  Sender: FDA-Public Use
  Company Number: US-GILEAD-2019-0400470

PATIENT
  Age: 53 Year
  Sex: Female

DRUGS (15)
  1. CLOPIDOGREL [Concomitant]
     Active Substance: CLOPIDOGREL BISULFATE
  2. SPIRONOLACTON [Concomitant]
     Active Substance: SPIRONOLACTONE
  3. ZOLPIDEM [Concomitant]
     Active Substance: ZOLPIDEM\ZOLPIDEM TARTRATE
  4. APAP/CODEINE [CODEINE PHOSPHATE;PARACETAMOL] [Concomitant]
  5. BUMETANIDE. [Concomitant]
     Active Substance: BUMETANIDE
  6. LINZESS [Concomitant]
     Active Substance: LINACLOTIDE
  7. METFORMIN [Concomitant]
     Active Substance: METFORMIN HYDROCHLORIDE
  8. ONDANSETRON [Concomitant]
     Active Substance: ONDANSETRON
  9. AMBRISENTAN [Suspect]
     Active Substance: AMBRISENTAN
     Indication: PULMONARY ARTERIAL HYPERTENSION
     Dosage: 5 MG, QD
     Route: 065
     Dates: start: 20190306
  10. MECLIZINE [Concomitant]
     Active Substance: MECLIZINE HYDROCHLORIDE
  11. CILOSTAZOL. [Concomitant]
     Active Substance: CILOSTAZOL
  12. DIGOX [DIGOXIN] [Concomitant]
  13. BASAGLAR [Concomitant]
     Active Substance: INSULIN GLARGINE
  14. GABAPENTIN. [Concomitant]
     Active Substance: GABAPENTIN
  15. GLIPIZIDE. [Concomitant]
     Active Substance: GLIPIZIDE

REACTIONS (2)
  - Syncope [Unknown]
  - Dizziness [Unknown]
